FAERS Safety Report 5893670-2 (Version None)
Quarter: 2008Q3

REPORT INFORMATION
  Report Type: 
  Country: None (occurrence: None)
  Receive Date: 20080923
  Receipt Date: 20071005
  Transmission Date: 20090109
  Serious: No
  Sender: FDA-Public Use
  Company Number: US-ASTRAZENECA-2007UW23358

PATIENT
  Age: 39 Year
  Sex: Female

DRUGS (6)
  1. SEROQUEL [Suspect]
     Indication: ANXIETY
     Route: 048
     Dates: end: 20070806
  2. SEROQUEL [Suspect]
     Indication: INSOMNIA
     Route: 048
     Dates: end: 20070806
  3. SEROQUEL [Suspect]
     Route: 048
  4. SEROQUEL [Suspect]
     Route: 048
  5. KLONOPIN [Concomitant]
  6. TEGRETOL [Concomitant]

REACTIONS (12)
  - ANGINA PECTORIS [None]
  - CARDIAC DISORDER [None]
  - DRUG TOXICITY [None]
  - DYSGEUSIA [None]
  - DYSPNOEA [None]
  - DYSURIA [None]
  - FEELING HOT [None]
  - MUSCLE TIGHTNESS [None]
  - PALPITATIONS [None]
  - PARAESTHESIA [None]
  - PARAESTHESIA ORAL [None]
  - RASH [None]
